FAERS Safety Report 24235521 (Version 1)
Quarter: 2024Q3

REPORT INFORMATION
  Report Type: Spontaneous
  Country: US (occurrence: US)
  Receive Date: 20240821
  Receipt Date: 20240821
  Transmission Date: 20241016
  Serious: No
  Sender: EMCURE
  Company Number: US-AVET LIFESCIENCES LTD-2024-AVET-000292

PATIENT

DRUGS (1)
  1. NYSTATIN [Suspect]
     Active Substance: NYSTATIN
     Indication: Product used for unknown indication
     Dosage: UNK
     Route: 065

REACTIONS (1)
  - Gluten sensitivity [Unknown]
